FAERS Safety Report 4802378-3 (Version None)
Quarter: 2005Q4

REPORT INFORMATION
  Report Type: 
  Country: None (occurrence: None)
  Receive Date: 20051013
  Receipt Date: 20050922
  Transmission Date: 20060501
  Serious: Yes (Other)
  Sender: FDA-Public Use
  Company Number: USA0509107388

PATIENT
  Age: 27 Year
  Sex: Male
  Weight: 70 kg

DRUGS (2)
  1. SYMBYAX [Suspect]
     Indication: ANGER
     Dates: start: 20050719
  2. ZYPREXA [Suspect]

REACTIONS (4)
  - AGGRESSION [None]
  - DEPRESSION [None]
  - INTENTIONAL SELF-INJURY [None]
  - ROAD TRAFFIC ACCIDENT [None]
